FAERS Safety Report 10756361 (Version 1)
Quarter: 2015Q1

REPORT INFORMATION
  Report Type: Spontaneous
  Country: FR (occurrence: FR)
  Receive Date: 20150202
  Receipt Date: 20150202
  Transmission Date: 20150721
  Serious: Yes (Hospitalization)
  Sender: FDA-Public Use
  Company Number: FR-GALDERMA-FR15000221

PATIENT
  Age: 80 Year
  Sex: Male

DRUGS (5)
  1. DIPROSONE [Suspect]
     Active Substance: BETAMETHASONE DIPROPIONATE
     Route: 061
     Dates: start: 201404, end: 201406
  2. SORIATANE [Suspect]
     Active Substance: ACITRETIN
     Route: 048
     Dates: start: 20140529, end: 20140601
  3. CLOBEX [Suspect]
     Active Substance: CLOBETASOL PROPIONATE
     Indication: ERYTHRODERMIC PSORIASIS
     Dosage: 0.05%
     Route: 061
     Dates: start: 20140401, end: 20140601
  4. SORIATANE [Suspect]
     Active Substance: ACITRETIN
     Indication: ERYTHRODERMIC PSORIASIS
     Route: 048
  5. TRIDESONIT [Suspect]
     Active Substance: DESONIDE
     Route: 061
     Dates: start: 201404, end: 201406

REACTIONS (3)
  - Herpes zoster [Not Recovered/Not Resolved]
  - Intentional product use issue [Not Recovered/Not Resolved]
  - Meningoencephalitis viral [Not Recovered/Not Resolved]

NARRATIVE: CASE EVENT DATE: 20140531
